FAERS Safety Report 6049972-2 (Version None)
Quarter: 2009Q1

REPORT INFORMATION
  Report Type: 
  Country: None (occurrence: None)
  Receive Date: 20090121
  Receipt Date: 20090105
  Transmission Date: 20090719
  Serious: Yes (Hospitalization)
  Sender: FDA-Public Use
  Company Number: FON_00036_2009

PATIENT
  Sex: Female

DRUGS (7)
  1. ROCALTROL [Suspect]
     Indication: HYPOCALCAEMIA
     Dosage: 1 UG, QD, ORAL
     Route: 048
     Dates: start: 20080312, end: 20080811
  2. ROCALTROL [Suspect]
     Indication: HYPOCALCAEMIA
     Dosage: 1 UG, QD, ORAL
     Route: 048
     Dates: start: 20080825
  3. SYNTHROID [Suspect]
     Indication: THYROIDECTOMY
     Dosage: 100 UG QD, ORAL, 112 UG QD, ORAL, 137 UG QD, ORAL
     Route: 048
     Dates: start: 20080310, end: 20080501
  4. SYNTHROID [Suspect]
     Indication: THYROIDECTOMY
     Dosage: 100 UG QD, ORAL, 112 UG QD, ORAL, 137 UG QD, ORAL
     Route: 048
     Dates: start: 20080501, end: 20080701
  5. SYNTHROID [Suspect]
     Indication: THYROIDECTOMY
     Dosage: 100 UG QD, ORAL, 112 UG QD, ORAL, 137 UG QD, ORAL
     Route: 048
     Dates: start: 20080701
  6. LEKOVIT CA [Concomitant]
  7. UNKNOWN DIET PILL [Concomitant]

REACTIONS (13)
  - ABASIA [None]
  - ANXIETY [None]
  - APHASIA [None]
  - CHEST PAIN [None]
  - FATIGUE [None]
  - FEELING ABNORMAL [None]
  - HYPOCALCAEMIA [None]
  - NERVOUSNESS [None]
  - PAIN [None]
  - PARAESTHESIA [None]
  - THINKING ABNORMAL [None]
  - THROAT TIGHTNESS [None]
  - WEIGHT INCREASED [None]
